FAERS Safety Report 12667520 (Version 8)
Quarter: 2022Q4

REPORT INFORMATION
  Report Type: Spontaneous
  Country: US (occurrence: US)
  Receive Date: 20160819
  Receipt Date: 20221206
  Transmission Date: 20230113
  Serious: Yes (Other)
  Sender: FDA-Public Use
  Company Number: US-PFIZER INC-2016392132

PATIENT
  Age: 58 Year
  Sex: Female
  Weight: 115 kg

DRUGS (2)
  1. PRISTIQ EXTENDED-RELEASE [Suspect]
     Active Substance: DESVENLAFAXINE SUCCINATE
     Dosage: 50 MG, DAILY
     Route: 048
     Dates: start: 2005
  2. PRISTIQ EXTENDED-RELEASE [Suspect]
     Active Substance: DESVENLAFAXINE SUCCINATE
     Dosage: 1 DF, ALTERNATE DAY
     Route: 048

REACTIONS (13)
  - Road traffic accident [Unknown]
  - Tinnitus [Unknown]
  - Intentional product misuse [Unknown]
  - Hypoacusis [Not Recovered/Not Resolved]
  - Nervousness [Unknown]
  - Sciatica [Unknown]
  - Illness [Unknown]
  - Feeling abnormal [Unknown]
  - Panic reaction [Unknown]
  - Anxiety [Unknown]
  - Confusional state [Unknown]
  - Restlessness [Unknown]
  - Memory impairment [Unknown]

NARRATIVE: CASE EVENT DATE: 20100101
